APPROVED DRUG PRODUCT: RETROVIR
Active Ingredient: ZIDOVUDINE
Strength: 200MG
Dosage Form/Route: TABLET;ORAL
Application: N020518 | Product #001
Applicant: VIIV HEALTHCARE CO
Approved: Dec 19, 1995 | RLD: No | RS: No | Type: DISCN